FAERS Safety Report 26132728 (Version 2)
Quarter: 2025Q4

REPORT INFORMATION
  Report Type: Spontaneous
  Country: EU (occurrence: EU)
  Receive Date: 20251208
  Receipt Date: 20251211
  Transmission Date: 20260117
  Serious: No
  Sender: ABBVIE
  Company Number: EU-STADA-01497142

PATIENT
  Age: 11 Year
  Sex: Female

DRUGS (1)
  1. ADALIMUMAB [Suspect]
     Active Substance: ADALIMUMAB
     Indication: Mixed connective tissue disease
     Route: 058

REACTIONS (1)
  - Off label use [Unknown]
